FAERS Safety Report 9113241 (Version 1)
Quarter: 2013Q1

REPORT INFORMATION
  Report Type: Spontaneous
  Country: US (occurrence: US)
  Receive Date: 20130201
  Receipt Date: 20130201
  Transmission Date: 20140127
  Serious: No
  Sender: FDA-Public Use
  Company Number: US-009507513-1302USA000300

PATIENT
  Age: 10 Year
  Sex: Female
  Weight: 44.44 kg

DRUGS (3)
  1. CLARITIN CHEWABLE TABLETS [Suspect]
     Indication: NASOPHARYNGITIS
     Dosage: 10 MG, QD
     Route: 048
  2. CLARITIN CHEWABLE TABLETS [Suspect]
     Dosage: 10 MG, ONCE
     Route: 048
     Dates: start: 20130128
  3. CLARITIN CHEWABLE TABLETS [Suspect]
     Dosage: 15 MG, ONCE
     Route: 048
     Dates: start: 20130128

REACTIONS (3)
  - Overdose [Unknown]
  - Accidental exposure to product by child [Unknown]
  - Off label use [Unknown]
